FAERS Safety Report 15317424 (Version 2)
Quarter: 2018Q3

REPORT INFORMATION
  Report Type: Spontaneous
  Country: US (occurrence: US)
  Receive Date: 20180824
  Receipt Date: 20180905
  Transmission Date: 20181010
  Serious: Yes (Hospitalization, Other)
  Sender: FDA-Public Use
  Company Number: US-ASTRAZENECA-2018SF05855

PATIENT
  Age: 21138 Day
  Sex: Male
  Weight: 66.7 kg

DRUGS (1)
  1. SYMBICORT [Suspect]
     Active Substance: BUDESONIDE\FORMOTEROL FUMARATE DIHYDRATE
     Indication: CHRONIC OBSTRUCTIVE PULMONARY DISEASE
     Dosage: 160/4.5 MCG TWO TIMES A DAY
     Route: 055
     Dates: start: 2018

REACTIONS (6)
  - Device malfunction [Unknown]
  - Dyspnoea [Unknown]
  - Product use issue [Unknown]
  - Cyanosis [Unknown]
  - Drug effect incomplete [Recovering/Resolving]
  - Wrong technique in device usage process [Unknown]

NARRATIVE: CASE EVENT DATE: 20180808
